FAERS Safety Report 12365140 (Version 4)
Quarter: 2016Q3

REPORT INFORMATION
  Report Type: Spontaneous
  Country: VE (occurrence: VE)
  Receive Date: 20160513
  Receipt Date: 20160719
  Transmission Date: 20161109
  Serious: Yes (Hospitalization, Other)
  Sender: FDA-Public Use
  Company Number: PHHY2016VE065770

PATIENT
  Age: 28 Year
  Sex: Male

DRUGS (11)
  1. TEGRETOL [Suspect]
     Active Substance: CARBAMAZEPINE
     Indication: SEIZURE
  2. TEGRETOL [Suspect]
     Active Substance: CARBAMAZEPINE
     Indication: CRANIOTOMY
     Dosage: 60 CM3, QD
     Route: 048
     Dates: start: 201511, end: 20160603
  3. QUINOMAX [Suspect]
     Active Substance: MOXIFLOXACIN HYDROCHLORIDE
     Indication: PRODUCT USED FOR UNKNOWN INDICATION
     Dosage: 8 GTT, QD
     Route: 065
  4. IPRAN [Concomitant]
     Active Substance: ESCITALOPRAM OXALATE
     Indication: DEPRESSION
     Dosage: 10 MG, QD
     Route: 065
     Dates: start: 201511
  5. TEGRETOL [Suspect]
     Active Substance: CARBAMAZEPINE
     Indication: CRANIOTOMY
     Dosage: 900 MG, QD
     Route: 048
     Dates: start: 20150920
  6. TEGRETOL [Suspect]
     Active Substance: CARBAMAZEPINE
     Indication: SEIZURE
  7. VALPRON//VALPROATE SODIUM [Suspect]
     Active Substance: VALPROATE SODIUM
     Indication: PRODUCT USED FOR UNKNOWN INDICATION
     Dosage: 30 CM3, QD
     Route: 065
     Dates: start: 20160622
  8. DEFLAZACORT [Concomitant]
     Active Substance: DEFLAZACORT
     Indication: PRODUCT USED FOR UNKNOWN INDICATION
     Dosage: 90 MG, QD
     Route: 065
     Dates: start: 20160714
  9. CARBAMAZEPINE. [Suspect]
     Active Substance: CARBAMAZEPINE
     Indication: BRAIN ABSCESS
     Dosage: 40 CM3, QD
     Route: 065
  10. BACTRON [Suspect]
     Active Substance: SULFAMETHOXAZOLE\TRIMETHOPRIM
     Indication: PRODUCT USED FOR UNKNOWN INDICATION
     Dosage: UNK UNK, QD
     Route: 065
  11. TEGRETOL [Suspect]
     Active Substance: CARBAMAZEPINE
     Indication: BRAIN ABSCESS
     Dosage: 1200 MG, QD
     Route: 048
     Dates: end: 20160603

REACTIONS (19)
  - Ear infection [Recovering/Resolving]
  - Hypoaesthesia [Not Recovered/Not Resolved]
  - Chills [Unknown]
  - Insomnia [Recovering/Resolving]
  - Seizure [Recovering/Resolving]
  - Tremor [Unknown]
  - Epilepsy [Recovering/Resolving]
  - Regressive behaviour [Unknown]
  - Nervousness [Unknown]
  - Crying [Recovering/Resolving]
  - Drug intolerance [Unknown]
  - Wrong technique in product usage process [Unknown]
  - Product use issue [Unknown]
  - Mastoiditis [Recovering/Resolving]
  - Pain [Recovering/Resolving]
  - Aphasia [Not Recovered/Not Resolved]
  - Aggression [Recovering/Resolving]
  - Somnolence [Unknown]
  - Fear [None]

NARRATIVE: CASE EVENT DATE: 20150920
